FAERS Safety Report 25460181 (Version 1)
Quarter: 2025Q2

REPORT INFORMATION
  Report Type: Spontaneous
  Country: US (occurrence: US)
  Receive Date: 20250620
  Receipt Date: 20250620
  Transmission Date: 20250716
  Serious: No
  Sender: SANOFI AVENTIS
  Company Number: US-SA-2025SA171802

PATIENT
  Age: 62 Year
  Sex: Female

DRUGS (1)
  1. CAPRELSA [Suspect]
     Active Substance: VANDETANIB
     Indication: Thyroid cancer
     Dosage: 300 MG, QD
     Route: 048
     Dates: start: 20231222

REACTIONS (6)
  - Skin discolouration [Unknown]
  - Arthralgia [Unknown]
  - Gastrooesophageal reflux disease [Recovered/Resolved]
  - Skin hyperpigmentation [Unknown]
  - Carcinoembryonic antigen decreased [Unknown]
  - Blood calcitonin decreased [Unknown]
